FAERS Safety Report 12289920 (Version 1)
Quarter: 2016Q2

REPORT INFORMATION
  Report Type: Spontaneous
  Country: US (occurrence: None)
  Receive Date: 20160420
  Receipt Date: 20160420
  Transmission Date: 20160815
  Serious: Yes (Hospitalization)
  Sender: FDA-Public Use
  Company Number: None

PATIENT
  Age: 20 Year
  Sex: Male
  Weight: 124.9 kg

DRUGS (1)
  1. HIZENTRA [Suspect]
     Active Substance: HUMAN IMMUNOGLOBULIN G
     Indication: HYPOGAMMAGLOBULINAEMIA
     Route: 058
     Dates: start: 20160418, end: 20160418

REACTIONS (8)
  - Chromaturia [None]
  - Pyrexia [None]
  - Myalgia [None]
  - Arthralgia [None]
  - Haemolysis [None]
  - Malaise [None]
  - Dizziness [None]
  - Skin discolouration [None]

NARRATIVE: CASE EVENT DATE: 20160418
